FAERS Safety Report 8296539 (Version 2)
Quarter: 2013Q3

REPORT INFORMATION
  Report Type: Spontaneous
  Country: US (occurrence: US)
  Receive Date: 20111216
  Receipt Date: 20130909
  Transmission Date: 20140515
  Serious: No
  Sender: FDA-Public Use
  Company Number: US-BRISTOL-MYERS SQUIBB COMPANY-16207003

PATIENT
  Age: 61 Year
  Sex: Female
  Weight: 108.84 kg

DRUGS (7)
  1. ABILIFY [Suspect]
     Indication: MAJOR DEPRESSION
     Dosage: ABILIFY SMP TAB 10MG.?ALSO TAKEN IN 1 MG DOSE?DOSE:2MG/D
     Dates: start: 2011
  2. BUPROPION SR [Concomitant]
     Dosage: 6 HRS APART
  3. OXYBUTIN [Concomitant]
     Indication: URINARY INCONTINENCE
  4. CITALOPRAM [Concomitant]
  5. ATORVASTATIN [Concomitant]
     Indication: BLOOD CHOLESTEROL
  6. LANSOPRAZOLE [Concomitant]
  7. CELEXA [Concomitant]

REACTIONS (2)
  - Drug ineffective [Unknown]
  - Fatigue [Recovered/Resolved]
